FAERS Safety Report 7956145-2 (Version None)
Quarter: 2011Q4

REPORT INFORMATION
  Report Type: 
  Country: None (occurrence: None)
  Receive Date: 20111205
  Receipt Date: 20111125
  Transmission Date: 20120403
  Serious: Yes (Other)
  Sender: FDA-Public Use
  Company Number: GB-ELI_LILLY_AND_COMPANY-GB201111007867

PATIENT

DRUGS (4)
  1. OMEPRAZOLE [Concomitant]
     Indication: HIATUS HERNIA
     Dosage: 20 MG, QD
  2. BYETTA [Suspect]
     Indication: TYPE 2 DIABETES MELLITUS
     Dosage: 5 UG, BID
     Dates: start: 20110119, end: 20110423
  3. BYETTA [Suspect]
     Dosage: 10 UG, BID
     Dates: start: 20110424
  4. OMEPRAZOLE [Concomitant]
     Dosage: 40 MG, QD

REACTIONS (9)
  - HAEMATURIA [None]
  - VIRAL INFECTION [None]
  - EXPIRED DRUG ADMINISTERED [None]
  - HIATUS HERNIA [None]
  - ABDOMINAL DISCOMFORT [None]
  - GASTROOESOPHAGEAL REFLUX DISEASE [None]
  - MALAISE [None]
  - REGURGITATION [None]
  - HAEMATOCHEZIA [None]
